FAERS Safety Report 5863036-X (Version None)
Quarter: 2008Q3

REPORT INFORMATION
  Report Type: 
  Country: None (occurrence: None)
  Receive Date: 20080818
  Receipt Date: 20080502
  Transmission Date: 20090109
  Serious: No
  Sender: FDA-Public Use
  Company Number: WAES 0805USA00598

PATIENT
  Age: 68 Year
  Sex: Male

DRUGS (5)
  1. JANUVIA [Suspect]
     Indication: DIABETES MELLITUS
     Dosage: PO
     Route: 048
     Dates: start: 20070501, end: 20080502
  2. COUMADIN [Concomitant]
  3. THERAPY UNSPECIFIED [Concomitant]
  4. FUROSEMIDE [Concomitant]
  5. INSULIN [Concomitant]

REACTIONS (1)
  - RASH [None]
